FAERS Safety Report 24832171 (Version 2)
Quarter: 2025Q3

REPORT INFORMATION
  Report Type: Spontaneous
  Country: CN (occurrence: CN)
  Receive Date: 20250110
  Receipt Date: 20250802
  Transmission Date: 20251021
  Serious: Yes (Life-Threatening, Hospitalization, Other)
  Sender: ALEXION PHARMACEUTICALS
  Company Number: CN-ASTRAZENECA-202501CHN005755CN

PATIENT
  Age: 49 Year
  Sex: Female
  Weight: 50 kg

DRUGS (3)
  1. FULVESTRANT [Suspect]
     Active Substance: FULVESTRANT
     Indication: Metastases to bone
     Dates: start: 20241115, end: 20241115
  2. FULVESTRANT [Suspect]
     Active Substance: FULVESTRANT
  3. GOSERELIN [Suspect]
     Active Substance: GOSERELIN
     Indication: Metastases to bone
     Dates: start: 20241115, end: 20241115

REACTIONS (1)
  - Myelosuppression [Recovering/Resolving]

NARRATIVE: CASE EVENT DATE: 20241213
